FAERS Safety Report 8786583 (Version 2)
Quarter: 2013Q1

REPORT INFORMATION
  Report Type: Spontaneous
  Country: BR (occurrence: BR)
  Receive Date: 20120914
  Receipt Date: 20130219
  Transmission Date: 20140127
  Serious: Yes (Other)
  Sender: FDA-Public Use
  Company Number: PHHY2012BR078940

PATIENT
  Sex: Female

DRUGS (7)
  1. DIOVAN AMLO FIX [Suspect]
     Indication: HYPERTENSION
     Dosage: 1 DF, A DAY
     Route: 048
  2. DIOVAN [Suspect]
     Indication: HYPERTENSION
     Dosage: 320 MG, DAILY
     Route: 048
  3. TEGRETOL [Suspect]
     Indication: CONVULSION
     Dosage: 20 MG, DAILY
  4. AAS [Concomitant]
     Indication: ANTICOAGULANT THERAPY
     Dosage: 100 MG, A DAY
     Route: 048
  5. LIPITOR [Concomitant]
     Indication: BLOOD CHOLESTEROL
     Dosage: 0.5 DF, DAILY
  6. PASSIFLORINE [Concomitant]
     Indication: SEDATIVE THERAPY
     Dosage: 10 ML, A DAY
     Route: 048
  7. ADDERA D3 [Concomitant]
     Indication: MEMORY IMPAIRMENT
     Dosage: 5 DF, A DAY
     Route: 048

REACTIONS (2)
  - Cerebrovascular accident [Recovering/Resolving]
  - Diabetes mellitus [Recovering/Resolving]
